FAERS Safety Report 9931446 (Version 2)
Quarter: 2014Q1

REPORT INFORMATION
  Report Type: Spontaneous
  Country: GB (occurrence: GB)
  Receive Date: 20140228
  Receipt Date: 20140324
  Transmission Date: 20141002
  Serious: Yes (Death)
  Sender: FDA-Public Use
  Company Number: GB-009507513-1402GBR012781

PATIENT
  Age: 65 Year
  Sex: Male

DRUGS (8)
  1. DEXAMETHASONE [Suspect]
     Indication: CASTLEMAN^S DISEASE
     Dosage: DOSAGE/INTERVAL: 1 CYCLICAL
     Route: 065
  2. DOXORUBICIN HYDROCHLORIDE [Suspect]
     Indication: CASTLEMAN^S DISEASE
     Dosage: DOSAGE/INTERVAL: 1 CYCLICAL
     Route: 042
  3. RITUXIMAB [Suspect]
     Indication: CASTLEMAN^S DISEASE
     Dosage: DOSAGE/INTERVAL: 1 CYCLICAL
     Route: 065
  4. CYCLOPHOSPHAMIDE [Suspect]
     Indication: CASTLEMAN^S DISEASE
     Dosage: DOSAGE/INTERVAL: 1 CYCLICAL
     Route: 065
  5. VINCRISTINE SULFATE [Suspect]
     Indication: CASTLEMAN^S DISEASE
     Dosage: DOSAGE/INTERVAL: 1 CYCLICAL
     Route: 065
  6. PREDNISONE [Suspect]
     Indication: CASTLEMAN^S DISEASE
     Dosage: DOSAGE/INTERVAL: 1 CYCLICAL
     Route: 065
  7. CYTARABINE [Suspect]
     Indication: CASTLEMAN^S DISEASE
     Dosage: DOSAGE/INTERVAL: 1 CYCLICAL
     Route: 065
  8. CISPLATIN [Suspect]
     Indication: CASTLEMAN^S DISEASE
     Dosage: DOSAGE/INTERVAL: 1 CYCLICAL
     Route: 065

REACTIONS (2)
  - Castleman^s disease [Fatal]
  - Off label use [Unknown]
